FAERS Safety Report 7875810-9 (Version None)
Quarter: 2011Q4

REPORT INFORMATION
  Report Type: 
  Country: None (occurrence: None)
  Receive Date: 20111031
  Receipt Date: 20111019
  Transmission Date: 20120403
  Serious: Yes (Other)
  Sender: FDA-Public Use
  Company Number: PHEH2011US02004

PATIENT
  Sex: Male

DRUGS (1)
  1. TASIGNA [Suspect]
     Indication: CHRONIC MYELOID LEUKAEMIA
     Dosage: 300 MG, BID
     Route: 048
     Dates: start: 20110725

REACTIONS (7)
  - POOR QUALITY SLEEP [None]
  - WEIGHT DECREASED [None]
  - INSOMNIA [None]
  - DECREASED APPETITE [None]
  - HEADACHE [None]
  - CONSTIPATION [None]
  - BENIGN NEOPLASM OF SKIN [None]
